FAERS Safety Report 22070735 (Version 1)
Quarter: 2023Q1

REPORT INFORMATION
  Report Type: Spontaneous
  Country: US (occurrence: US)
  Receive Date: 20230307
  Receipt Date: 20230307
  Transmission Date: 20230417
  Serious: No
  Sender: FDA-Public Use
  Company Number: US-SA-SAC20230303000135

PATIENT
  Age: 75 Year
  Sex: Male
  Weight: 106.59 kg

DRUGS (2)
  1. DUPIXENT [Suspect]
     Active Substance: DUPILUMAB
     Indication: Dermatitis atopic
     Dosage: 300 MG, QOW
     Route: 058
     Dates: start: 2020
  2. DUPIXENT [Suspect]
     Active Substance: DUPILUMAB
     Dosage: 300 MG, QOW
     Route: 058
     Dates: start: 202211

REACTIONS (7)
  - Fatigue [Unknown]
  - Inflammation [Unknown]
  - Pulmonary mass [Unknown]
  - Aortic aneurysm [Unknown]
  - Pruritus [Unknown]
  - Therapeutic product effect incomplete [Unknown]
  - Rash papular [Unknown]

NARRATIVE: CASE EVENT DATE: 20200101
